FAERS Safety Report 6638957-0 (Version None)
Quarter: 2010Q1

REPORT INFORMATION
  Report Type: 
  Country: None (occurrence: None)
  Receive Date: 20100317
  Receipt Date: 20100305
  Transmission Date: 20100710
  Serious: Yes (Hospitalization)
  Sender: FDA-Public Use
  Company Number: FR-GILEAD-2009-0022691

PATIENT
  Sex: Female

DRUGS (9)
  1. TRUVADA [Suspect]
     Indication: HIV INFECTION
     Route: 048
     Dates: start: 20080411, end: 20090511
  2. KALETRA [Concomitant]
     Indication: HIV INFECTION
     Route: 048
     Dates: start: 20080401, end: 20090511
  3. COPEGUS [Concomitant]
     Indication: HEPATITIS C
     Route: 048
     Dates: start: 20080829, end: 20090511
  4. PEGASYS [Concomitant]
     Indication: HEPATITIS C
     Route: 058
     Dates: start: 20080929, end: 20090511
  5. MANTADIX [Concomitant]
     Route: 048
  6. NEORECORMON [Concomitant]
     Route: 058
     Dates: start: 20081119
  7. ERYTHROPOIETINE [Concomitant]
     Indication: HEPATITIS C
     Dates: start: 20080101
  8. BACTRIM [Concomitant]
     Route: 048
  9. DOLIPRANE [Concomitant]
     Route: 048

REACTIONS (3)
  - FANCONI SYNDROME ACQUIRED [None]
  - HAEMOLYTIC ANAEMIA [None]
  - RENAL FAILURE ACUTE [None]
